FAERS Safety Report 8185060 (Version 5)
Quarter: 2013Q1

REPORT INFORMATION
  Report Type: Spontaneous
  Country: US (occurrence: US)
  Receive Date: 20111018
  Receipt Date: 20130124
  Transmission Date: 20140127
  Serious: No
  Sender: FDA-Public Use
  Company Number: US-ASTRAZENECA-2011SE33574

PATIENT
  Age: 84 Year
  Sex: Female

DRUGS (5)
  1. SYMBICORT PMDI [Suspect]
     Dosage: UNKNOWN
     Route: 055
  2. SYMBICORT PMDI [Suspect]
     Dosage: TWO PUFFS TWO TIMES A DAY
     Route: 055
  3. SYMBICORT PMDI [Suspect]
     Dosage: ONE PUFF TWICE A DAY
     Route: 055
  4. SYMBICORT PMDI [Suspect]
     Dosage: TWO PUFFS TWICE A DAY
     Route: 055
  5. PRO-AIR [Concomitant]

REACTIONS (7)
  - Chronic obstructive pulmonary disease [Unknown]
  - Dyspnoea [Unknown]
  - Osteoarthritis [Unknown]
  - Nervousness [Unknown]
  - Drug prescribing error [Unknown]
  - Intentional drug misuse [Unknown]
  - Drug dose omission [Unknown]
